FAERS Safety Report 7639869-6 (Version None)
Quarter: 2011Q3

REPORT INFORMATION
  Report Type: 
  Country: None (occurrence: None)
  Receive Date: 20110727
  Receipt Date: 20110722
  Transmission Date: 20111222
  Serious: Yes (Death)
  Sender: FDA-Public Use
  Company Number: ZA-ASTRAZENECA-2011SE42835

PATIENT
  Sex: Female
  Weight: 60 kg

DRUGS (7)
  1. SEROQUEL [Suspect]
     Indication: BIPOLAR I DISORDER
     Route: 048
     Dates: start: 20090215
  2. VALPROIC ACID [Concomitant]
     Indication: BIPOLAR I DISORDER
     Route: 048
     Dates: start: 20090215
  3. ABILIFY [Concomitant]
     Dates: start: 20090202
  4. ZOPICLONE [Concomitant]
  5. PAROXETINE HCL [Concomitant]
     Dates: start: 20100519
  6. PAROXETINE HCL [Concomitant]
     Dates: start: 20100720
  7. ALPRAZOLAM [Concomitant]
     Route: 048

REACTIONS (2)
  - COMPLETED SUICIDE [None]
  - OVERDOSE [None]
